FAERS Safety Report 4861147-9 (Version None)
Quarter: 2005Q4

REPORT INFORMATION
  Report Type: 
  Country: None (occurrence: None)
  Receive Date: 20051220
  Receipt Date: 20051109
  Transmission Date: 20060501
  Serious: Yes (Life-Threatening, Hospitalization)
  Sender: FDA-Public Use
  Company Number: FR-SANOFI-SYNTHELABO-A02200502943

PATIENT
  Age: 64 Year
  Sex: Male
  Weight: 55 kg

DRUGS (3)
  1. ELOXATIN [Suspect]
     Indication: COLON CANCER
     Route: 042
     Dates: start: 20051011, end: 20051011
  2. FLUOROURACIL [Concomitant]
     Dosage: UNK
     Route: 065
  3. LEVOFOLINATE [Concomitant]
     Dosage: UNK
     Route: 065

REACTIONS (2)
  - BLOOD CREATININE INCREASED [None]
  - RENAL FAILURE [None]
